FAERS Safety Report 20003349 (Version 1)
Quarter: 2021Q4

REPORT INFORMATION
  Report Type: Spontaneous
  Country: FR (occurrence: FR)
  Receive Date: 20211027
  Receipt Date: 20211027
  Transmission Date: 20220303
  Serious: Yes (Other)
  Sender: FDA-Public Use
  Company Number: FR-ABBVIE-21K-056-4137119-00

PATIENT
  Age: 35 Year
  Sex: Male

DRUGS (3)
  1. DEPAKOTE [Suspect]
     Active Substance: DIVALPROEX SODIUM
     Indication: Affective disorder
     Dosage: IN THE EVENING
     Route: 065
  2. DEPAKOTE [Suspect]
     Active Substance: DIVALPROEX SODIUM
     Dosage: IN THE MORNING
     Route: 065
  3. VALPROMIDE [Concomitant]
     Active Substance: VALPROMIDE
     Indication: Product used for unknown indication

REACTIONS (4)
  - Respiratory distress [Unknown]
  - Abdominal distension [Unknown]
  - Dyspepsia [Unknown]
  - Malaise [Unknown]
